FAERS Safety Report 17720287 (Version 2)
Quarter: 2020Q2

REPORT INFORMATION
  Report Type: Spontaneous
  Country: US (occurrence: US)
  Receive Date: 20200428
  Receipt Date: 20200513
  Transmission Date: 20200714
  Serious: Yes (Life-Threatening, Hospitalization)
  Sender: FDA-Public Use
  Company Number: US-TEVA-2020-US-1228021

PATIENT
  Age: 66 Year
  Sex: Female

DRUGS (1)
  1. ADENOSINE. [Suspect]
     Active Substance: ADENOSINE
     Dosage: SLOW INFUSION
     Route: 022

REACTIONS (2)
  - Ventricular fibrillation [Unknown]
  - Ventricular tachycardia [Unknown]
